FAERS Safety Report 4790047-8 (Version None)
Quarter: 2005Q4

REPORT INFORMATION
  Report Type: 
  Country: None (occurrence: None)
  Receive Date: 20051006
  Receipt Date: 20050928
  Transmission Date: 20060501
  Serious: Yes (Life-Threatening, Other)
  Sender: FDA-Public Use
  Company Number: DE-JNJFOC-20050704918

PATIENT
  Sex: Male
  Weight: 84 kg

DRUGS (15)
  1. RISPERDAL [Suspect]
     Route: 048
  2. RISPERDAL [Suspect]
     Route: 048
  3. RISPERDAL [Suspect]
     Route: 048
  4. RISPERDAL [Suspect]
     Dosage: 1-0-2 MG DAILY
     Route: 048
  5. RISPERDAL [Suspect]
     Route: 048
  6. TAXILAN [Suspect]
     Dosage: MAXIMUM DOSE, THEN DECREASED SLOWLY
     Route: 048
  7. TAXILAN [Suspect]
     Indication: SCHIZOPHRENIA
     Dosage: SLOWLY INCREASING DOSAGE
     Route: 048
  8. AKINETON [Concomitant]
     Route: 048
  9. AKINETON [Concomitant]
     Route: 048
  10. AKINETON [Concomitant]
     Indication: AKINESIA
     Route: 048
  11. AKINETON [Concomitant]
     Route: 048
  12. TAVOR [Concomitant]
     Dosage: 0-0-0.5 MG
     Route: 048
  13. TAVOR [Concomitant]
     Dosage: 0.5-0-0.5 MG
     Route: 048
  14. TAVOR [Concomitant]
     Route: 048
  15. TAVOR [Concomitant]
     Indication: ANXIETY
     Dosage: 0-0-0.5 MG
     Route: 048

REACTIONS (3)
  - DIABETES MELLITUS INSULIN-DEPENDENT [None]
  - EXTRAPYRAMIDAL DISORDER [None]
  - KETOACIDOSIS [None]
